FAERS Safety Report 4681925-9 (Version None)
Quarter: 2005Q2

REPORT INFORMATION
  Report Type: 
  Country: None (occurrence: None)
  Receive Date: 20050602
  Receipt Date: 20050520
  Transmission Date: 20051028
  Serious: Yes (Death, Hospitalization, Other)
  Sender: FDA-Public Use
  Company Number: 2005067542

PATIENT
  Age: 15 Year
  Sex: Male
  Weight: 56.5 kg

DRUGS (6)
  1. VIAGRA [Suspect]
     Indication: PULMONARY HYPERTENSION
     Dosage: 0.89 MG/KG (0.89 MG/KG, 1 IN 1 D), ORAL
     Route: 048
     Dates: start: 20030506, end: 20030506
  2. FLOLAN [Concomitant]
  3. ALDACTONE [Concomitant]
  4. DIGOXIN [Concomitant]
  5. LASIX [Concomitant]
  6. ENALAPRIL MALEATE [Concomitant]

REACTIONS (11)
  - BLOOD PRESSURE DIASTOLIC DECREASED [None]
  - CARDIAC FAILURE [None]
  - CARDIO-RESPIRATORY ARREST [None]
  - CARDIOMEGALY [None]
  - DISEASE PROGRESSION [None]
  - HEART RATE INCREASED [None]
  - PALPITATIONS [None]
  - PULMONARY HYPERTENSION [None]
  - RESPIRATORY DISTRESS [None]
  - RESPIRATORY RATE INCREASED [None]
  - SYNCOPE [None]
